FAERS Safety Report 18038591 (Version 2)
Quarter: 2020Q3

REPORT INFORMATION
  Report Type: Spontaneous
  Country: US (occurrence: US)
  Receive Date: 20200717
  Receipt Date: 20200720
  Transmission Date: 20201103
  Serious: Yes (Other)
  Sender: FDA-Public Use
  Company Number: US-PFIZER INC-2020272675

PATIENT
  Age: 72 Year
  Sex: Male

DRUGS (3)
  1. VITAMIN D [COLECALCIFEROL] [Concomitant]
     Active Substance: CHOLECALCIFEROL
     Dosage: UNK
  2. BRAFTOVI [Suspect]
     Active Substance: ENCORAFENIB
     Dosage: 3 DF, DAILY [3 CAPS DAILY]
     Route: 048
     Dates: start: 20200708
  3. BRAFTOVI [Suspect]
     Active Substance: ENCORAFENIB
     Indication: RECTAL CANCER
     Dosage: 300 MG, DAILY [4 CAPS DAILY]
     Route: 048

REACTIONS (7)
  - Off label use [Unknown]
  - Haemorrhage [Unknown]
  - Abdominal pain [Unknown]
  - Abdominal discomfort [Unknown]
  - Haematochezia [Unknown]
  - Gout [Not Recovered/Not Resolved]
  - Product use in unapproved indication [Unknown]
